FAERS Safety Report 18374539 (Version 1)
Quarter: 2020Q4

REPORT INFORMATION
  Report Type: Spontaneous
  Country: US (occurrence: US)
  Receive Date: 20201012
  Receipt Date: 20201012
  Transmission Date: 20210114
  Serious: No
  Sender: FDA-Public Use
  Company Number: US-GE HEALTHCARE LIFE SCIENCES-2020CSU002440

PATIENT
  Age: 55 Year
  Sex: Female

DRUGS (5)
  1. VISIPAQUE [Suspect]
     Active Substance: IODIXANOL
     Indication: COMPUTERISED TOMOGRAM THORAX
     Dosage: UNKNOWN DOSE AT A FLOWRATE OF 1.8 (NO UNITS), SINGLE
     Route: 042
     Dates: start: 20200608, end: 20200608
  2. VISIPAQUE [Suspect]
     Active Substance: IODIXANOL
     Indication: COMPUTERISED TOMOGRAM PELVIS
  3. VISIPAQUE [Suspect]
     Active Substance: IODIXANOL
     Indication: COLON CANCER
  4. VISIPAQUE [Suspect]
     Active Substance: IODIXANOL
     Indication: COMPUTERISED TOMOGRAM ABDOMEN
  5. VISIPAQUE [Suspect]
     Active Substance: IODIXANOL
     Indication: BREAST CANCER

REACTIONS (1)
  - Injection site extravasation [Unknown]

NARRATIVE: CASE EVENT DATE: 20200608
